FAERS Safety Report 20031105 (Version 1)
Quarter: 2021Q4

REPORT INFORMATION
  Report Type: Spontaneous
  Country: US (occurrence: US)
  Receive Date: 20211103
  Receipt Date: 20211103
  Transmission Date: 20220303
  Serious: No
  Sender: FDA-Public Use
  Company Number: US-ALLERGAN-2104130US

PATIENT
  Sex: Female

DRUGS (1)
  1. VRAYLAR [Suspect]
     Active Substance: CARIPRAZINE
     Indication: Bipolar I disorder
     Dosage: STARTED ON 1.5MG CAP, IN THE MORNING

REACTIONS (4)
  - Restlessness [Unknown]
  - Insomnia [Unknown]
  - Weight increased [Unknown]
  - Terminal insomnia [Unknown]
